FAERS Safety Report 12036959 (Version 1)
Quarter: 2016Q1

REPORT INFORMATION
  Report Type: Report from Study
  Country: US (occurrence: US)
  Receive Date: 20160208
  Receipt Date: 20160208
  Transmission Date: 20160526
  Serious: No
  Sender: FDA-Public Use
  Company Number: US-AMGEN-USASL2016012923

PATIENT
  Sex: Female

DRUGS (1)
  1. ENBREL [Suspect]
     Active Substance: ETANERCEPT
     Indication: RHEUMATOID ARTHRITIS
     Dosage: UNK
     Route: 065
     Dates: start: 20041101

REACTIONS (4)
  - Malaise [Unknown]
  - Bronchitis [Unknown]
  - Foot operation [Unknown]
  - Sinusitis [Unknown]

NARRATIVE: CASE EVENT DATE: 20151117
